FAERS Safety Report 6577025-3 (Version None)
Quarter: 2010Q1

REPORT INFORMATION
  Report Type: 
  Country: None (occurrence: None)
  Receive Date: 20100210
  Receipt Date: 20100129
  Transmission Date: 20100710
  Serious: Yes (Congenital Anomaly)
  Sender: FDA-Public Use
  Company Number: RS-BAYER-201014602GPV

PATIENT

DRUGS (1)
  1. CIPROFLOXACIN [Suspect]
     Indication: DRUG USE FOR UNKNOWN INDICATION

REACTIONS (1)
  - CONGENITAL CHOROID PLEXUS CYST [None]
